FAERS Safety Report 20535906 (Version 12)
Quarter: 2025Q1

REPORT INFORMATION
  Report Type: Spontaneous
  Country: US (occurrence: US)
  Receive Date: 20220302
  Receipt Date: 20250204
  Transmission Date: 20250409
  Serious: Yes (Disabling, Other)
  Sender: ORGANON
  Company Number: US-ORGANON-O2202USA002341

PATIENT
  Sex: Female

DRUGS (3)
  1. SINGULAIR [Suspect]
     Active Substance: MONTELUKAST SODIUM
     Indication: Asthma
     Route: 048
     Dates: start: 2001
  2. SINGULAIR [Suspect]
     Active Substance: MONTELUKAST SODIUM
     Route: 048
     Dates: end: 2019
  3. SINGULAIR [Suspect]
     Active Substance: MONTELUKAST SODIUM
     Route: 048

REACTIONS (29)
  - Neuropsychological symptoms [Not Recovered/Not Resolved]
  - Intentional self-injury [Not Recovered/Not Resolved]
  - Anxiety disorder [Not Recovered/Not Resolved]
  - Depression [Not Recovered/Not Resolved]
  - Hallucination [Not Recovered/Not Resolved]
  - Suicidal ideation [Not Recovered/Not Resolved]
  - Major depression [Not Recovered/Not Resolved]
  - Pneumonia [Recovering/Resolving]
  - Type 2 diabetes mellitus [Recovering/Resolving]
  - Post-traumatic stress disorder [Unknown]
  - Insomnia [Unknown]
  - Tachycardia [Unknown]
  - Drug ineffective [Unknown]
  - Feeling guilty [Unknown]
  - Emotional distress [Unknown]
  - Anhedonia [Unknown]
  - Feeling abnormal [Unknown]
  - Hypersomnia [Unknown]
  - Irritability [Unknown]
  - Restlessness [Unknown]
  - Fatigue [Not Recovered/Not Resolved]
  - Disturbance in attention [Unknown]
  - Hypervigilance [Unknown]
  - Nightmare [Unknown]
  - Social anxiety disorder [Unknown]
  - Asthma [Unknown]
  - Nervousness [Recovered/Resolved]
  - Anxiety [Recovered/Resolved]
  - Adjustment disorder [Unknown]

NARRATIVE: CASE EVENT DATE: 20010101
